FAERS Safety Report 9184265 (Version 1)
Quarter: 2013Q1

REPORT INFORMATION
  Report Type: Spontaneous
  Country: US (occurrence: US)
  Receive Date: 20130322
  Receipt Date: 20130322
  Transmission Date: 20140127
  Serious: Yes (Other)
  Sender: FDA-Public Use
  Company Number: US-ELI_LILLY_AND_COMPANY-US201303006576

PATIENT
  Sex: Male

DRUGS (2)
  1. CYMBALTA [Suspect]
     Indication: ARTHRALGIA
     Dosage: 60 MG, UNK
  2. CYMBALTA [Suspect]
     Dosage: 30 MG, UNK
     Dates: end: 20130127

REACTIONS (7)
  - Convulsion [Unknown]
  - Cerebrovascular accident [Unknown]
  - Feeling abnormal [Unknown]
  - Headache [Unknown]
  - Nausea [Unknown]
  - Paraesthesia [Unknown]
  - Drug ineffective [Unknown]
